FAERS Safety Report 19066413 (Version 1)
Quarter: 2021Q1

REPORT INFORMATION
  Report Type: Spontaneous
  Country: FR (occurrence: FR)
  Receive Date: 20210328
  Receipt Date: 20210328
  Transmission Date: 20210420
  Serious: Yes (Death, Congenital Anomaly)
  Sender: FDA-Public Use
  Company Number: FR-TEVA-2021-FR-1893028

PATIENT
  Age: 34 Year
  Sex: Female
  Weight: 64 kg

DRUGS (4)
  1. DOXORUBICINE TEVA [Suspect]
     Active Substance: DOXORUBICIN
     Indication: T-CELL LYMPHOMA
     Route: 041
     Dates: start: 20201105, end: 20201105
  2. UROMITEXAN [Suspect]
     Active Substance: MESNA
     Indication: T-CELL LYMPHOMA
     Route: 065
     Dates: start: 20201105, end: 20201105
  3. CELLTOP [Suspect]
     Active Substance: ETOPOSIDE
     Indication: T-CELL LYMPHOMA
     Route: 041
     Dates: start: 20201105, end: 20201107
  4. ENDOXAN [Suspect]
     Active Substance: CYCLOPHOSPHAMIDE
     Indication: T-CELL LYMPHOMA
     Route: 041
     Dates: start: 20201105, end: 20201105

REACTIONS (4)
  - Skin erosion [Fatal]
  - Erythema [Fatal]
  - Condition aggravated [Fatal]
  - Aplasia [Fatal]

NARRATIVE: CASE EVENT DATE: 20201106
